FAERS Safety Report 9696899 (Version 2)
Quarter: 2013Q4

REPORT INFORMATION
  Report Type: Spontaneous
  Country: US (occurrence: US)
  Receive Date: 20131119
  Receipt Date: 20131119
  Transmission Date: 20140711
  Serious: No
  Sender: FDA-Public Use
  Company Number: US-GILEAD-2007-0013433

PATIENT
  Age: 70 Year
  Sex: Female

DRUGS (14)
  1. LETAIRIS [Suspect]
     Indication: PULMONARY HYPERTENSION
     Route: 048
     Dates: start: 20070822, end: 20071015
  2. LETAIRIS [Suspect]
     Indication: PULMONARY HYPERTENSION
     Route: 048
  3. PROCRIT [Suspect]
     Dosage: 20,000 UNITS/2ML
  4. MONTELUKAST [Concomitant]
     Route: 048
  5. BOSENTAN [Concomitant]
     Route: 048
  6. BOSENTAN [Concomitant]
     Route: 048
  7. TACROLIMUS [Concomitant]
     Route: 048
  8. TORSEMIDE [Concomitant]
     Dosage: 1 IN  A.M. AND 1 AT NOON
     Route: 048
  9. BACTRIM [Concomitant]
     Route: 048
  10. PREDNISONE [Concomitant]
     Route: 048
  11. DUONEB [Concomitant]
     Route: 045
  12. OXYGEN [Concomitant]
     Dosage: USE AS DIRECTED
     Route: 045
  13. COREG [Concomitant]
     Route: 048
  14. VITAMIN B 50 [Concomitant]

REACTIONS (3)
  - Dyspnoea [Recovered/Resolved]
  - Local swelling [Unknown]
  - Dyspnoea [Recovered/Resolved]
